FAERS Safety Report 17032420 (Version 1)
Quarter: 2019Q4

REPORT INFORMATION
  Report Type: Spontaneous
  Country: FR (occurrence: FR)
  Receive Date: 20191114
  Receipt Date: 20191114
  Transmission Date: 20200122
  Serious: Yes (Other)
  Sender: FDA-Public Use
  Company Number: FR-009507513-1911FRA003927

PATIENT
  Age: 78 Year
  Sex: Male
  Weight: 114 kg

DRUGS (13)
  1. LEXOMIL [Concomitant]
     Active Substance: BROMAZEPAM
     Route: 048
  2. TRULICITY [Concomitant]
     Active Substance: DULAGLUTIDE
     Dosage: 1 DOSAGE FORM, QW
     Route: 058
  3. RILMENIDINE [Concomitant]
     Active Substance: RILMENIDINE
     Dosage: 2 DOSAGE FORM, QD
     Route: 048
  4. KEYTRUDA [Suspect]
     Active Substance: PEMBROLIZUMAB
     Route: 042
     Dates: start: 20190523
  5. AIROMIR [Concomitant]
     Active Substance: ALBUTEROL SULFATE
     Dosage: AS NECESSARY
     Route: 055
  6. ULTIBRO [Concomitant]
     Active Substance: GLYCOPYRRONIUM\INDACATEROL
     Dosage: 1 DOSAGE FORM, QD
     Route: 055
  7. COAPROVEL [Concomitant]
     Active Substance: HYDROCHLOROTHIAZIDE\IRBESARTAN
     Dosage: 1 DOSAGE FORM, QD; STRENTH OF 300MG/25 G
     Route: 048
  8. LERCANIDIPINE HYDROCHLORIDE [Concomitant]
     Active Substance: LERCANIDIPINE HYDROCHLORIDE
     Route: 048
  9. CRESTOR [Concomitant]
     Active Substance: ROSUVASTATIN CALCIUM
     Dosage: 1 DOSAGE FORM, QD
     Route: 048
  10. CELIPROLOL HYDROCHLORIDE [Concomitant]
     Active Substance: CELIPROLOL HYDROCHLORIDE
     Dosage: 200 MILLIGRAM, QD
     Route: 048
  11. ALBUTEROL. [Concomitant]
     Active Substance: ALBUTEROL
     Dosage: 300 MICROGRAM, QD
     Route: 055
  12. ANORO ELLIPTA [Concomitant]
     Active Substance: UMECLIDINIUM BROMIDE\VILANTEROL TRIFENATATE
     Dosage: 1 DOSAGE FORM, QD
     Route: 055
  13. INNOHEP [Concomitant]
     Active Substance: TINZAPARIN SODIUM
     Indication: PULMONARY EMBOLISM
     Dosage: 1 DOSAGE FORM, QD
     Route: 058
     Dates: start: 201908

REACTIONS (3)
  - Lichen planus [Recovering/Resolving]
  - Rash papular [Recovering/Resolving]
  - Palmoplantar keratoderma [Recovering/Resolving]

NARRATIVE: CASE EVENT DATE: 20190923
